FAERS Safety Report 18308068 (Version 2)
Quarter: 2020Q4

REPORT INFORMATION
  Report Type: Spontaneous
  Country: ES (occurrence: ES)
  Receive Date: 20200924
  Receipt Date: 20201012
  Transmission Date: 20210113
  Serious: Yes (Hospitalization)
  Sender: FDA-Public Use
  Company Number: ES-BAUSCH-BL-2017-034762

PATIENT
  Age: 66 Year
  Sex: Male

DRUGS (25)
  1. SALBUTAMOL [Concomitant]
     Active Substance: ALBUTEROL
     Indication: RESPIRATORY TRACT INFECTION
     Route: 055
     Dates: start: 20171026
  2. DEXAMETHASONE. [Suspect]
     Active Substance: DEXAMETHASONE
     Indication: PLASMA CELL MYELOMA
     Route: 065
     Dates: start: 20071101, end: 20080528
  3. DEXAMETHASONE. [Suspect]
     Active Substance: DEXAMETHASONE
     Route: 065
     Dates: start: 20160105, end: 20160126
  4. TESTOSTERONE. [Concomitant]
     Active Substance: TESTOSTERONE
     Indication: HYPOGONADISM
     Route: 065
     Dates: start: 20170101
  5. IBUPROFEN. [Concomitant]
     Active Substance: IBUPROFEN
     Indication: BACK PAIN
     Route: 065
     Dates: start: 20161121
  6. CYCLOPHOSPHAMIDE. [Concomitant]
     Active Substance: CYCLOPHOSPHAMIDE
     Route: 065
     Dates: start: 20160105
  7. URSODEOXYCHOLIC ACID [Concomitant]
     Active Substance: URSODIOL
     Indication: CALCULUS URINARY
     Route: 065
     Dates: start: 20170825
  8. BUDESONIDE;FORMOTEROL FUMARATE DIHYDRATE [Concomitant]
     Active Substance: BUDESONIDE\FORMOTEROL FUMARATE DIHYDRATE
     Indication: RESPIRATORY TRACT INFECTION
     Dosage: 320/9 MCG
     Route: 055
     Dates: start: 20161026
  9. DEXAMETHASONE. [Suspect]
     Active Substance: DEXAMETHASONE
     Route: 065
     Dates: start: 20100301, end: 20110130
  10. DEXAMETHASONE. [Suspect]
     Active Substance: DEXAMETHASONE
     Route: 065
     Dates: start: 20140910, end: 20150928
  11. ALLOPURINOL. [Concomitant]
     Active Substance: ALLOPURINOL
     Indication: PROPHYLAXIS
     Route: 065
     Dates: start: 20160105
  12. DEXAMETHASONE. [Suspect]
     Active Substance: DEXAMETHASONE
     Route: 065
     Dates: start: 20170811, end: 20170811
  13. CYCLOPHOSPHAMIDE. [Concomitant]
     Active Substance: CYCLOPHOSPHAMIDE
     Indication: PLASMA CELL MYELOMA
     Route: 065
     Dates: start: 20071101, end: 20080528
  14. ASPIRIN. [Concomitant]
     Active Substance: ASPIRIN
     Indication: PROPHYLAXIS
     Route: 065
     Dates: start: 20170825
  15. FOLIC ACID. [Concomitant]
     Active Substance: FOLIC ACID
     Indication: PROPHYLAXIS
     Route: 065
  16. LACTULOSE. [Concomitant]
     Active Substance: LACTULOSE
     Indication: CONSTIPATION
     Route: 065
     Dates: start: 20170825
  17. DEXAMETHASONE. [Suspect]
     Active Substance: DEXAMETHASONE
     Route: 065
     Dates: start: 20091101, end: 20100228
  18. POMALIDOMIDE [Suspect]
     Active Substance: POMALIDOMIDE
     Indication: PLASMA CELL MYELOMA
     Route: 048
     Dates: start: 20160105, end: 20160125
  19. TRIMETHOPRIM SULFAMETHOXAZOLE [Concomitant]
     Active Substance: SULFAMETHOXAZOLE\TRIMETHOPRIM
     Indication: PROPHYLAXIS
     Dosage: 160MG/800MG
     Route: 065
     Dates: start: 20160401
  20. CALCIFEDIOL [Concomitant]
     Active Substance: CALCIFEDIOL
     Indication: VITAMIN D DEFICIENCY
     Route: 065
     Dates: start: 20160701
  21. VORICONAZOLE. [Concomitant]
     Active Substance: VORICONAZOLE
     Indication: CANDIDA INFECTION
     Route: 065
     Dates: start: 20170820, end: 20170825
  22. POMALIDOMIDE [Suspect]
     Active Substance: POMALIDOMIDE
     Route: 048
     Dates: start: 20170810, end: 20170813
  23. FUROSEMIDE. [Concomitant]
     Active Substance: FUROSEMIDE
     Indication: PERIPHERAL VENOUS DISEASE
     Route: 065
     Dates: start: 20161121
  24. RABEPRAZOL [Concomitant]
     Active Substance: RABEPRAZOLE
     Indication: PROPHYLAXIS
     Route: 065
     Dates: start: 20160105
  25. FENTANYL. [Concomitant]
     Active Substance: FENTANYL
     Indication: PAIN
     Dosage: 4 MICROGRAM
     Route: 065
     Dates: start: 20160112

REACTIONS (2)
  - Hypotension [Recovered/Resolved]
  - Pneumonia [Recovered/Resolved]

NARRATIVE: CASE EVENT DATE: 20170811
